FAERS Safety Report 6829892-3 (Version None)
Quarter: 2010Q3

REPORT INFORMATION
  Report Type: 
  Country: None (occurrence: None)
  Receive Date: 20100711
  Receipt Date: 20100426
  Transmission Date: 20110219
  Serious: No
  Sender: FDA-Public Use
  Company Number: US-ALLERGAN-0913620US

PATIENT
  Age: 51 Year
  Sex: Female

DRUGS (6)
  1. LATISSE [Suspect]
     Indication: GROWTH OF EYELASHES
     Dosage: 1 GTT, QHS
     Route: 061
     Dates: start: 20090501
  2. COMBINATIONS OF VITAMINS [Concomitant]
  3. DHEA [Concomitant]
     Dosage: UNK
  4. THYROID TAB [Concomitant]
     Indication: HYPOTHYROIDISM
     Dosage: UNK
  5. BIO-IDENTICAL HORMONES [Concomitant]
     Indication: MENOPAUSE
     Dosage: UNK
  6. TESTOSTERONE [Concomitant]
     Indication: MENOPAUSE
     Dosage: UNK

REACTIONS (3)
  - HYPOTRICHOSIS [None]
  - MADAROSIS [None]
  - TRICHORRHEXIS [None]
